FAERS Safety Report 14583515 (Version 1)
Quarter: 2018Q1

REPORT INFORMATION
  Report Type: Spontaneous
  Country: SE (occurrence: SE)
  Receive Date: 20180228
  Receipt Date: 20180228
  Transmission Date: 20180509
  Serious: Yes (Other)
  Sender: FDA-Public Use
  Company Number: SE-TEVA-2018-SE-861618

PATIENT
  Age: 40 Year
  Sex: Male

DRUGS (14)
  1. STILNOCT [Concomitant]
     Active Substance: ZOLPIDEM TARTRATE
  2. DIKLOFENAK [Concomitant]
     Active Substance: DICLOFENAC SODIUM
  3. BETNOVAT [Concomitant]
     Active Substance: BETAMETHASONE
  4. DENTAN MINT [Concomitant]
  5. TOSTREX [Concomitant]
     Active Substance: TESTOSTERONE
  6. VENLAFAXINE [Suspect]
     Active Substance: VENLAFAXINE HYDROCHLORIDE
     Indication: DEPRESSED MOOD
     Route: 048
     Dates: start: 201712, end: 201712
  7. DESONIX [Concomitant]
  8. LAMOTRIGIN [Concomitant]
     Active Substance: LAMOTRIGINE
  9. ALVEDON [Concomitant]
     Active Substance: ACETAMINOPHEN
  10. MONTELUKAST [Concomitant]
     Active Substance: MONTELUKAST SODIUM
  11. BUFOMIX EASYHALER [Concomitant]
  12. VENLAFAXINE [Suspect]
     Active Substance: VENLAFAXINE HYDROCHLORIDE
     Indication: ANXIETY
     Route: 065
  13. BRICANYL [Concomitant]
     Active Substance: TERBUTALINE SULFATE
  14. OMEPRAZOL [Concomitant]
     Active Substance: OMEPRAZOLE

REACTIONS (2)
  - Hallucination, visual [Recovered/Resolved]
  - Hallucination, auditory [Recovered/Resolved]

NARRATIVE: CASE EVENT DATE: 20171217
